FAERS Safety Report 4988784-5 (Version None)
Quarter: 2006Q2

REPORT INFORMATION
  Report Type: 
  Country: None (occurrence: None)
  Receive Date: 20060502
  Receipt Date: 20050926
  Transmission Date: 20061013
  Serious: Yes (Hospitalization)
  Sender: FDA-Public Use
  Company Number: US-MERCK-0509USA03767

PATIENT
  Age: 53 Year
  Sex: Male
  Weight: 82 kg

DRUGS (5)
  1. VIOXX [Suspect]
     Indication: ARTHRITIS
     Route: 048
     Dates: start: 20000505, end: 20001001
  2. ZANTAC [Concomitant]
     Indication: PEPTIC ULCER
     Route: 048
  3. DOXEPIN HYDROCHLORIDE [Concomitant]
     Route: 065
  4. HYDROCODONE BITARTRATE [Concomitant]
     Indication: PAIN IN EXTREMITY
     Route: 065
  5. CEPHALEXIN [Concomitant]
     Route: 065

REACTIONS (29)
  - ARTHRALGIA [None]
  - ASTHENIA [None]
  - BACK PAIN [None]
  - BURSITIS [None]
  - CARDIOMEGALY [None]
  - CHEST DISCOMFORT [None]
  - CHEST PAIN [None]
  - CORONARY ARTERY DISEASE [None]
  - COUGH [None]
  - DIZZINESS [None]
  - DYSPNOEA [None]
  - DYSPNOEA EXERTIONAL [None]
  - EYE INFECTION [None]
  - FATIGUE [None]
  - HEART RATE IRREGULAR [None]
  - HYPERHIDROSIS [None]
  - HYPERLIPIDAEMIA [None]
  - HYPERTENSION [None]
  - HYPOAESTHESIA [None]
  - HYPOKALAEMIA [None]
  - INTESTINAL FUNCTIONAL DISORDER [None]
  - LIMB DISCOMFORT [None]
  - LIMB INJURY [None]
  - MYOCARDIAL INFARCTION [None]
  - NAUSEA [None]
  - PAIN IN EXTREMITY [None]
  - PARAESTHESIA [None]
  - RHINITIS ALLERGIC [None]
  - STRESS [None]
